FAERS Safety Report 18471848 (Version 2)
Quarter: 2020Q4

REPORT INFORMATION
  Report Type: Spontaneous
  Country: US (occurrence: US)
  Receive Date: 20201106
  Receipt Date: 20201207
  Transmission Date: 20210114
  Serious: Yes (Hospitalization)
  Sender: FDA-Public Use
  Company Number: US-SA-2020SA309100

PATIENT

DRUGS (26)
  1. NYSTATIN. [Concomitant]
     Active Substance: NYSTATIN
     Route: 048
  2. CREON [Concomitant]
     Active Substance: PANCRELIPASE AMYLASE\PANCRELIPASE LIPASE\PANCRELIPASE PROTEASE
  3. DIFLUCAN [Concomitant]
     Active Substance: FLUCONAZOLE
  4. LEVALBUTEROL HCL [Concomitant]
     Active Substance: LEVALBUTEROL HYDROCHLORIDE
  5. PROZAC [Concomitant]
     Active Substance: FLUOXETINE HYDROCHLORIDE
     Dosage: UNK
  6. CARDIZEM [Concomitant]
     Active Substance: DILTIAZEM HYDROCHLORIDE
  7. INCRUSE ELLIPTA [Concomitant]
     Active Substance: UMECLIDINIUM BROMIDE
  8. HYQVIA [Concomitant]
     Active Substance: HUMAN IMMUNOGLOBULIN G\HYALURONIDASE RECOMBINANT HUMAN
  9. NASONEX [Concomitant]
     Active Substance: MOMETASONE FUROATE
  10. ALPRAZOLAM. [Concomitant]
     Active Substance: ALPRAZOLAM
  11. DUPIXENT [Suspect]
     Active Substance: DUPILUMAB
     Indication: ASTHMA
     Dosage: 300 MG, QOW
     Route: 058
     Dates: start: 202009
  12. AZELASTINE HCL [Concomitant]
     Active Substance: AZELASTINE HYDROCHLORIDE
  13. PREDNISONE. [Concomitant]
     Active Substance: PREDNISONE
  14. LEVEMIR [Concomitant]
     Active Substance: INSULIN DETEMIR
  15. PROTONIX [OMEPRAZOLE] [Concomitant]
     Active Substance: OMEPRAZOLE
  16. DEXILANT [Concomitant]
     Active Substance: DEXLANSOPRAZOLE
  17. MOMETASONE FUROATE. [Concomitant]
     Active Substance: MOMETASONE FUROATE
  18. PROAIR HFA [Concomitant]
     Active Substance: ALBUTEROL SULFATE
  19. LAMICTAL [Concomitant]
     Active Substance: LAMOTRIGINE
  20. DOXYCYCLINE MONOHYDRATE [Concomitant]
     Active Substance: DOXYCYCLINE
  21. HUMALOG [Concomitant]
     Active Substance: INSULIN LISPRO
  22. RYTHMOL [PROPAFENONE] [Concomitant]
     Active Substance: PROPAFENONE
  23. LIPITOR [Concomitant]
     Active Substance: ATORVASTATIN CALCIUM
  24. LYRICA [Concomitant]
     Active Substance: PREGABALIN
  25. LOSARTAN POTASSIUM. [Concomitant]
     Active Substance: LOSARTAN POTASSIUM
  26. INSULIN [Concomitant]
     Active Substance: INSULIN NOS

REACTIONS (5)
  - Diarrhoea [Unknown]
  - Vomiting [Unknown]
  - COVID-19 [Unknown]
  - Weight decreased [Unknown]
  - Viral infection [Unknown]

NARRATIVE: CASE EVENT DATE: 2020
